FAERS Safety Report 23188554 (Version 2)
Quarter: 2023Q4

REPORT INFORMATION
  Report Type: Spontaneous
  Country: US (occurrence: US)
  Receive Date: 20231115
  Receipt Date: 20231229
  Transmission Date: 20240110
  Serious: No
  Sender: FDA-Public Use
  Company Number: US-PFIZER INC-PV202300128449

PATIENT
  Age: 76 Year
  Sex: Female
  Weight: 54.875 kg

DRUGS (2)
  1. BOSULIF [Suspect]
     Active Substance: BOSUTINIB MONOHYDRATE
     Indication: Chronic myeloid leukaemia
     Dosage: 500 MG, DAILY
     Route: 048
  2. BOSULIF [Suspect]
     Active Substance: BOSUTINIB MONOHYDRATE
     Indication: Systemic mastocytosis
     Dosage: 500 MG, 1X/DAY
     Dates: start: 202309

REACTIONS (1)
  - Immune system disorder [Not Recovered/Not Resolved]
